FAERS Safety Report 8931738 (Version 2)
Quarter: 2013Q1

REPORT INFORMATION
  Report Type: Report from Study
  Country: DE (occurrence: DE)
  Receive Date: 20121128
  Receipt Date: 20130107
  Transmission Date: 20140127
  Serious: Yes (Hospitalization)
  Sender: FDA-Public Use
  Company Number: DE-ROCHE-1156578

PATIENT
  Age: 68 Year
  Sex: Female
  Weight: 73.9 kg

DRUGS (6)
  1. BEVACIZUMAB [Suspect]
     Indication: COLORECTAL CANCER METASTATIC
     Dosage: LAST DOSE OF 5 MG/KG PRIOR TO SAE ON 07/NOV/2012
     Route: 042
     Dates: start: 20120516
  2. OXALIPLATIN [Suspect]
     Indication: COLORECTAL CANCER METASTATIC
     Dosage: LAST DOSE OF 85 MG/M2 PRIOR TO SAE ON 07/NOV/2012
     Route: 042
     Dates: start: 20120516
  3. FOLINIC ACID [Suspect]
     Indication: COLORECTAL CANCER METASTATIC
     Dosage: LAST DOSE OF 200 MG/M2 PRIOR TO SAE ON 07/NOV/2012
     Route: 042
     Dates: start: 20120516
  4. 5-FLUOROURACIL [Suspect]
     Indication: COLORECTAL CANCER METASTATIC
     Dosage: LAST DOSE OF 3200 MG/M2 PRIOR TO SAE ON 07/NOV/2012
     Route: 042
     Dates: start: 20120516
  5. HYDROCHLOROTHIAZIDE [Concomitant]
     Indication: HYPERTENSION
     Dosage: 150/12.5/ MG
     Route: 048
     Dates: start: 2004
  6. FLUOXETIN [Concomitant]
     Indication: DEPRESSION
     Route: 048
     Dates: start: 2002

REACTIONS (3)
  - Femoral neck fracture [Recovered/Resolved]
  - Pain in extremity [Unknown]
  - Groin pain [Unknown]
